FAERS Safety Report 9308881 (Version 1)
Quarter: 2013Q2

REPORT INFORMATION
  Report Type: Spontaneous
  Country: US (occurrence: US)
  Receive Date: 20130524
  Receipt Date: 20130524
  Transmission Date: 20140414
  Serious: No
  Sender: FDA-Public Use
  Company Number: US-ASTRAZENECA-2013SE33690

PATIENT
  Age: 30 Year
  Sex: Male

DRUGS (2)
  1. SEROQUEL XR [Suspect]
     Indication: BIPOLAR II DISORDER
     Route: 048
  2. RISPERDAL [Concomitant]
     Route: 065

REACTIONS (3)
  - Erection increased [Unknown]
  - Painful erection [Unknown]
  - Intentional drug misuse [Unknown]
